FAERS Safety Report 22592761 (Version 4)
Quarter: 2024Q3

REPORT INFORMATION
  Report Type: Report from Study
  Country: US (occurrence: US)
  Receive Date: 20230613
  Receipt Date: 20240723
  Transmission Date: 20241017
  Serious: Yes (Death, Hospitalization)
  Sender: BAUSCH AND LOMB
  Company Number: US-BAUSCH-BL-2023-008826

PATIENT
  Age: 55 Year
  Sex: Male

DRUGS (1)
  1. XIFAXAN [Suspect]
     Active Substance: RIFAXIMIN
     Indication: Liver disorder
     Route: 065
     Dates: start: 2012

REACTIONS (5)
  - Hepatic failure [Fatal]
  - Dementia [Fatal]
  - Haematological infection [Unknown]
  - Hepatic encephalopathy [Unknown]
  - Product use issue [Unknown]

NARRATIVE: CASE EVENT DATE: 20120101
